FAERS Safety Report 7649863-7 (Version None)
Quarter: 2011Q3

REPORT INFORMATION
  Report Type: 
  Country: None (occurrence: None)
  Receive Date: 20110802
  Receipt Date: 20110801
  Transmission Date: 20111222
  Serious: Yes (Hospitalization, Other)
  Sender: FDA-Public Use
  Company Number: KR-SANOFI-AVENTIS-2011SA041609

PATIENT
  Age: 65 Year
  Sex: Female
  Weight: 48 kg

DRUGS (5)
  1. LANTUS [Suspect]
     Dosage: DOSE:18 UNIT(S)
     Route: 058
  2. LANTUS [Suspect]
     Dates: start: 20110628, end: 20110628
  3. LANTUS [Suspect]
     Indication: DIABETES MELLITUS
     Route: 058
     Dates: start: 20110503, end: 20110627
  4. ORAL ANTIDIABETICS [Suspect]
     Indication: DIABETES MELLITUS
     Route: 048
  5. ORAL ANTIDIABETICS [Suspect]
     Route: 048
     Dates: start: 20110628, end: 20110628

REACTIONS (3)
  - INTENTIONAL OVERDOSE [None]
  - HYPOGLYCAEMIC UNCONSCIOUSNESS [None]
  - SUICIDE ATTEMPT [None]
